FAERS Safety Report 19163687 (Version 3)
Quarter: 2021Q2

REPORT INFORMATION
  Report Type: Report from Study
  Country: US (occurrence: US)
  Receive Date: 20210421
  Receipt Date: 20210531
  Transmission Date: 20210717
  Serious: Yes (Other)
  Sender: FDA-Public Use
  Company Number: NVSC2021US089275

PATIENT
  Sex: Female

DRUGS (1)
  1. AFINITOR [Suspect]
     Active Substance: EVEROLIMUS
     Indication: PRODUCT USED FOR UNKNOWN INDICATION
     Dosage: UNK
     Route: 065

REACTIONS (7)
  - Gait disturbance [Unknown]
  - Cough [Unknown]
  - Diabetes mellitus [Unknown]
  - Blood glucose decreased [Unknown]
  - Epistaxis [Unknown]
  - Stomatitis [Unknown]
  - Fatigue [Unknown]
